FAERS Safety Report 8001916-X (Version None)
Quarter: 2011Q4

REPORT INFORMATION
  Report Type: 
  Country: None (occurrence: None)
  Receive Date: 20111123
  Receipt Date: 20111014
  Transmission Date: 20120403
  Serious: No
  Sender: FDA-Public Use
  Company Number: 336231

PATIENT
  Age: 46 Year
  Sex: Female

DRUGS (3)
  1. VICTOZA [Suspect]
     Indication: BLOOD GLUCOSE INCREASED
     Dosage: 0.6 MG, QD, SUBCUTANEOUS
     Dates: start: 20110917
  2. VICTOZA [Suspect]
     Indication: GLYCOSYLATED HAEMOGLOBIN INCREASED
     Dosage: 0.6 MG, QD, SUBCUTANEOUS
     Dates: start: 20110917
  3. VICTOZA [Suspect]
     Indication: OVERWEIGHT
     Dosage: 0.6 MG, QD, SUBCUTANEOUS
     Dates: start: 20110917

REACTIONS (3)
  - BLOOD PRESSURE INCREASED [None]
  - BLADDER SPASM [None]
  - TACHYCARDIA [None]
